FAERS Safety Report 21283920 (Version 1)
Quarter: 2022Q3

REPORT INFORMATION
  Report Type: Spontaneous
  Country: US (occurrence: None)
  Receive Date: 20220901
  Receipt Date: 20220901
  Transmission Date: 20221027
  Serious: No
  Sender: FDA-Public Use
  Company Number: None

PATIENT
  Age: 73 Year
  Sex: Male
  Weight: 61.23 kg

DRUGS (16)
  1. ABIRATERONE [Suspect]
     Active Substance: ABIRATERONE
     Indication: Prostate cancer
     Dosage: FREQUENCY : DAILY;?
     Route: 048
  2. AMINO ACIDS/MINERALS [Concomitant]
  3. ASCORBBIC ACID [Concomitant]
  4. ASPIRIN [Concomitant]
  5. DEXAMETHASONE [Concomitant]
  6. ELIGARD [Concomitant]
  7. VITAMIN D3 [Concomitant]
  8. LOPERAMIDE [Concomitant]
  9. LUPRON [Concomitant]
  10. NYSTATIN [Concomitant]
  11. PANTOPRAZOLE [Concomitant]
  12. PAXIL [Concomitant]
  13. PIQRAY [Concomitant]
  14. PROCHLORPERAZINE [Concomitant]
  15. VITAMIN B12 [Concomitant]
     Active Substance: CYANOCOBALAMIN
  16. VITAMIN D3 [Concomitant]

REACTIONS (1)
  - Hospice care [None]
